FAERS Safety Report 10246174 (Version 1)
Quarter: 2014Q2

REPORT INFORMATION
  Report Type: Spontaneous
  Country: TR (occurrence: TR)
  Receive Date: 20140619
  Receipt Date: 20140619
  Transmission Date: 20141212
  Serious: Yes (Other)
  Sender: FDA-Public Use
  Company Number: TR-JNJFOC-20140611320

PATIENT
  Sex: Female

DRUGS (4)
  1. XARELTO [Suspect]
     Indication: PRODUCT USED FOR UNKNOWN INDICATION
     Route: 048
  2. LASIX [Concomitant]
     Route: 065
  3. HYZAAR [Concomitant]
     Route: 065
  4. CORDARONE [Concomitant]
     Route: 065

REACTIONS (4)
  - Dementia [Recovered/Resolved]
  - Unresponsive to stimuli [Unknown]
  - Memory impairment [Unknown]
  - Personality disorder [Unknown]
